FAERS Safety Report 5970795-4 (Version None)
Quarter: 2008Q4

REPORT INFORMATION
  Report Type: 
  Country: None (occurrence: None)
  Receive Date: 20081126
  Receipt Date: 20081112
  Transmission Date: 20090506
  Serious: No
  Sender: FDA-Public Use
  Company Number: US-ABBOTT-08P-163-0487680-00

PATIENT
  Sex: Female
  Weight: 80.812 kg

DRUGS (6)
  1. SIMCOR [Suspect]
     Indication: BLOOD TRIGLYCERIDES INCREASED
     Dosage: 1000/20 MG AT BEDTIME
     Route: 048
     Dates: start: 20081106, end: 20081109
  2. NIASPAN [Suspect]
     Indication: BLOOD TRIGLYCERIDES INCREASED
     Dosage: TAKEN ONLY ONCE
     Dates: start: 20060101, end: 20060101
  3. LEVOTHYROXINE SODIUM [Concomitant]
     Indication: DRUG USE FOR UNKNOWN INDICATION
  4. RAMIPRIL [Concomitant]
     Indication: DRUG USE FOR UNKNOWN INDICATION
  5. METFORMIN HCL [Concomitant]
     Indication: DIABETES MELLITUS
     Dosage: UNKNOWN
  6. GABAPENTIN [Concomitant]
     Indication: DRUG USE FOR UNKNOWN INDICATION
     Dosage: UNKNOWN

REACTIONS (6)
  - ASTHENIA [None]
  - DIZZINESS [None]
  - ERYTHEMA [None]
  - FLUSHING [None]
  - LOSS OF CONSCIOUSNESS [None]
  - RASH [None]
